FAERS Safety Report 7743769-0 (Version None)
Quarter: 2011Q3

REPORT INFORMATION
  Report Type: 
  Country: None (occurrence: None)
  Receive Date: 20110819
  Receipt Date: 20110705
  Transmission Date: 20111222
  Serious: No
  Sender: FDA-Public Use
  Company Number: 035652

PATIENT
  Sex: Female
  Weight: 66 kg

DRUGS (3)
  1. LACOSAMIDE [Suspect]
     Indication: CONVULSION
     Dosage: 250 MG QD ORAL
     Route: 048
     Dates: start: 20090728
  2. LAMICTAL [Concomitant]
  3. ZONEGRAN [Concomitant]

REACTIONS (2)
  - WEIGHT INCREASED [None]
  - INCREASED APPETITE [None]
